FAERS Safety Report 5959541-8 (Version None)
Quarter: 2008Q4

REPORT INFORMATION
  Report Type: 
  Country: None (occurrence: None)
  Receive Date: 20081118
  Receipt Date: 20081105
  Transmission Date: 20090506
  Serious: Yes (Other)
  Sender: FDA-Public Use
  Company Number: 2008EK000209

PATIENT
  Age: 34 Year
  Sex: Female

DRUGS (6)
  1. NICARDIPINE HCL [Suspect]
     Indication: PREMATURE LABOUR
     Dosage: IV
     Route: 042
  2. NICARDIPINE HCL [Suspect]
     Indication: PROPHYLAXIS
     Dosage: IV
     Route: 042
  3. NICARDIPINE HCL [Suspect]
     Indication: PREMATURE LABOUR
     Dosage: PO
     Route: 048
  4. NICARDIPINE HCL [Suspect]
     Indication: PROPHYLAXIS
     Dosage: PO
     Route: 048
  5. BETAMETHASONE [Concomitant]
  6. ATOSIBAN [Concomitant]

REACTIONS (6)
  - ACUTE PULMONARY OEDEMA [None]
  - DRUG EXPOSURE DURING PREGNANCY [None]
  - PLEURAL EFFUSION [None]
  - PNEUMONIA PRIMARY ATYPICAL [None]
  - RESPIRATORY ALKALOSIS [None]
  - RESPIRATORY DISTRESS [None]
